FAERS Safety Report 9619141 (Version 1)
Quarter: 2013Q4

REPORT INFORMATION
  Report Type: Spontaneous
  Country: US (occurrence: US)
  Receive Date: 20131014
  Receipt Date: 20131014
  Transmission Date: 20140711
  Serious: Yes (Other)
  Sender: FDA-Public Use
  Company Number: US-PFIZER INC-2013292280

PATIENT
  Age: 52 Year
  Sex: Female

DRUGS (2)
  1. CHANTIX [Suspect]
     Dosage: UNK
  2. NORVASC [Suspect]
     Indication: BLOOD PRESSURE
     Dosage: UNK

REACTIONS (2)
  - Lung neoplasm malignant [Unknown]
  - Abnormal dreams [Unknown]
